FAERS Safety Report 19157513 (Version 1)
Quarter: 2021Q2

REPORT INFORMATION
  Report Type: Spontaneous
  Country: IT (occurrence: IT)
  Receive Date: 20210420
  Receipt Date: 20210420
  Transmission Date: 20210717
  Serious: Yes (Death, Life-Threatening, Hospitalization, Other)
  Sender: FDA-Public Use
  Company Number: IT-SA-2021SA129309

PATIENT
  Age: 53 Year
  Sex: Male

DRUGS (5)
  1. SEQUACOR [Concomitant]
     Active Substance: BISOPROLOL
     Dosage: INCREASED DOSE
  2. OLMEGAN [Concomitant]
     Active Substance: HYDROCHLOROTHIAZIDE\OLMESARTAN MEDOXOMIL
  3. SEQUACOR [Concomitant]
     Active Substance: BISOPROLOL
     Indication: TACHYARRHYTHMIA
  4. MYOZYME [Suspect]
     Active Substance: ALGLUCOSIDASE ALFA
     Indication: GLYCOGEN STORAGE DISORDER
     Dosage: UNK UNK, QOW
     Route: 065
     Dates: start: 2014
  5. NORVASC [Concomitant]
     Active Substance: AMLODIPINE BESYLATE

REACTIONS (6)
  - General physical health deterioration [Unknown]
  - Heart rate increased [Fatal]
  - Cardiac arrest [Fatal]
  - Tachyarrhythmia [Fatal]
  - SARS-CoV-2 test positive [Recovered/Resolved]
  - COVID-19 [Recovered/Resolved]

NARRATIVE: CASE EVENT DATE: 20210214
